FAERS Safety Report 9233599 (Version 1)
Quarter: 2013Q2

REPORT INFORMATION
  Report Type: Spontaneous
  Country: US (occurrence: US)
  Receive Date: 20130416
  Receipt Date: 20130416
  Transmission Date: 20140414
  Serious: No
  Sender: FDA-Public Use
  Company Number: US-BANPHARM-20120451

PATIENT
  Age: 23 Month
  Sex: Female
  Weight: 11.79 kg

DRUGS (2)
  1. ALEVE LIQUID GELS 220MG [Suspect]
     Dosage: 1 DF, ONCE,
     Route: 048
     Dates: start: 20121210, end: 20121210
  2. NEBULIZER [Concomitant]
     Dosage: PRN

REACTIONS (2)
  - Productive cough [Recovered/Resolved]
  - Accidental exposure to product by child [Recovered/Resolved]
